FAERS Safety Report 25395127 (Version 1)
Quarter: 2025Q2

REPORT INFORMATION
  Report Type: Spontaneous
  Country: US (occurrence: None)
  Receive Date: 20250603
  Receipt Date: 20250603
  Transmission Date: 20250717
  Serious: Yes (Hospitalization)
  Sender: FDA-CTU
  Company Number: None

PATIENT
  Sex: Female
  Weight: 138.6 kg

DRUGS (3)
  1. WINREVAIR [Suspect]
     Active Substance: SOTATERCEPT-CSRK
     Indication: Pulmonary arterial hypertension
     Dosage: OTHER FREQUENCY : EVERY 3 WEEKS;?
     Route: 058
     Dates: start: 20241022
  2. OPSUMIT [Suspect]
     Active Substance: MACITENTAN
  3. REMODULIN [Suspect]
     Active Substance: TREPROSTINIL

REACTIONS (3)
  - Dyspnoea [None]
  - Therapy interrupted [None]
  - Weight decreased [None]
